FAERS Safety Report 9888934 (Version 1)
Quarter: 2014Q1

REPORT INFORMATION
  Report Type: Spontaneous
  Country: FR (occurrence: FR)
  Receive Date: 20140211
  Receipt Date: 20140211
  Transmission Date: 20141002
  Serious: Yes (Hospitalization)
  Sender: FDA-Public Use
  Company Number: FR-GLAXOSMITHKLINE-B0965684A

PATIENT
  Sex: 0

DRUGS (6)
  1. REQUIP [Suspect]
     Indication: PARKINSON^S DISEASE
     Route: 048
     Dates: start: 200911
  2. PREVISCAN (FLUINDIONE) [Concomitant]
     Dosage: 10MG PER DAY
     Route: 065
  3. BISOPROLOL [Concomitant]
     Dosage: 5MG PER DAY
     Route: 065
  4. PRAVASTATIN [Concomitant]
     Dosage: 40MG PER DAY
     Route: 065
  5. APROVEL [Concomitant]
     Dosage: 150MG PER DAY
     Route: 065
  6. TRIVASTAL [Concomitant]
     Indication: PARKINSON^S DISEASE
     Dosage: 150MG PER DAY
     Route: 065
     Dates: start: 200912, end: 201003

REACTIONS (6)
  - Hypersexuality [Recovered/Resolved]
  - Anxiety [Unknown]
  - Irritability [Unknown]
  - Somnolence [Unknown]
  - Impulse-control disorder [Unknown]
  - Aggression [Unknown]
